FAERS Safety Report 6521415-1 (Version None)
Quarter: 2009Q4

REPORT INFORMATION
  Report Type: 
  Country: None (occurrence: None)
  Receive Date: 20091230
  Receipt Date: 20091221
  Transmission Date: 20100525
  Serious: Yes (Death, Hospitalization)
  Sender: FDA-Public Use
  Company Number: US-ROCHE-660574

PATIENT
  Sex: Female
  Weight: 54.4 kg

DRUGS (1)
  1. CAPECITABINE [Suspect]
     Route: 048
     Dates: start: 20081101, end: 20090905

REACTIONS (2)
  - DEATH [None]
  - PNEUMONIA [None]
